FAERS Safety Report 6534447-4 (Version None)
Quarter: 2009Q4

REPORT INFORMATION
  Report Type: 
  Country: None (occurrence: None)
  Receive Date: 20091228
  Receipt Date: 20090706
  Transmission Date: 20100525
  Serious: Yes (Other)
  Sender: FDA-Public Use
  Company Number: 20090281

PATIENT
  Age: 74 Year
  Sex: Female

DRUGS (1)
  1. VENOFER [Suspect]
     Indication: RENAL FAILURE CHRONIC
     Dosage: INTRAVENOUS
     Route: 042
     Dates: start: 20090623

REACTIONS (1)
  - ANAPHYLACTOID REACTION [None]
